FAERS Safety Report 4467109-8 (Version None)
Quarter: 2004Q4

REPORT INFORMATION
  Report Type: 
  Country: None (occurrence: None)
  Receive Date: 20041004
  Receipt Date: 20041004
  Transmission Date: 20050328
  Serious: Yes (Hospitalization)
  Sender: FDA-Public Use
  Company Number: None

PATIENT
  Age: 46 Year
  Weight: 106.7 kg

DRUGS (1)
  1. NIASPAN [Suspect]
     Dosage: 500 MG Q AMN AND 1000 MG HS (PO)
     Route: 048
     Dates: start: 20040712, end: 20040915

REACTIONS (6)
  - ANAPHYLACTIC REACTION [None]
  - BURNING SENSATION [None]
  - DYSPNOEA [None]
  - RASH ERYTHEMATOUS [None]
  - RASH MACULAR [None]
  - RESPIRATORY DISTRESS [None]
